FAERS Safety Report 4866959-3 (Version None)
Quarter: 2005Q4

REPORT INFORMATION
  Report Type: 
  Country: None (occurrence: None)
  Receive Date: 20051227
  Receipt Date: 20051216
  Transmission Date: 20060501
  Serious: Yes (Death, Hospitalization)
  Sender: FDA-Public Use
  Company Number: CO-MERCK-0512COL00008

PATIENT
  Age: 64 Year
  Sex: Female
  Weight: 64 kg

DRUGS (1)
  1. VIOXX [Suspect]
     Route: 065
     Dates: start: 19990601, end: 20050514

REACTIONS (1)
  - CEREBROVASCULAR ACCIDENT [None]
